FAERS Safety Report 15568550 (Version 1)
Quarter: 2018Q4

REPORT INFORMATION
  Report Type: Other
  Country: GB (occurrence: GB)
  Receive Date: 20181031
  Receipt Date: 20181031
  Transmission Date: 20190205
  Serious: No
  Sender: FDA-Public Use
  Company Number: GB-LUPIN PHARMACEUTICALS INC.-2018-01158

PATIENT
  Age: 47 Year
  Sex: Male

DRUGS (2)
  1. ACICLOVIR [Concomitant]
     Active Substance: ACYCLOVIR
     Indication: ILL-DEFINED DISORDER
     Dosage: UNK
     Route: 065
  2. LISINOPRIL. [Suspect]
     Active Substance: LISINOPRIL
     Indication: ESSENTIAL HYPERTENSION
     Dosage: 10 MG, UNK
     Route: 048
     Dates: end: 20180126

REACTIONS (1)
  - Paraesthesia [Recovering/Resolving]
